FAERS Safety Report 11950449 (Version 2)
Quarter: 2016Q1

REPORT INFORMATION
  Report Type: Spontaneous
  Country: US (occurrence: US)
  Receive Date: 20160126
  Receipt Date: 20160307
  Transmission Date: 20160526
  Serious: Yes (Death)
  Sender: FDA-Public Use
  Company Number: US-ASTELLAS-2016US002734

PATIENT
  Age: 74 Year
  Sex: Male

DRUGS (1)
  1. XTANDI [Suspect]
     Active Substance: ENZALUTAMIDE
     Indication: PROSTATE CANCER
     Dosage: 160 MG (04 CAPSULES OF 40 MG), ONCE DAILY
     Route: 048
     Dates: start: 20151014, end: 20160101

REACTIONS (1)
  - Death [Fatal]

NARRATIVE: CASE EVENT DATE: 20160101
